FAERS Safety Report 26066936 (Version 1)
Quarter: 2025Q4

REPORT INFORMATION
  Report Type: Report from Study
  Country: US (occurrence: US)
  Receive Date: 20251119
  Receipt Date: 20251119
  Transmission Date: 20260117
  Serious: Yes (Other)
  Sender: ABBVIE
  Company Number: US-ABBVIE-6550460

PATIENT
  Sex: Female

DRUGS (2)
  1. VRAYLAR [Suspect]
     Active Substance: CARIPRAZINE
     Indication: Product used for unknown indication
     Route: 048
  2. LATUDA [Suspect]
     Active Substance: LURASIDONE HYDROCHLORIDE
     Indication: Product used for unknown indication
     Route: 065

REACTIONS (7)
  - Coma [Unknown]
  - Systemic lupus erythematosus [Unknown]
  - Pneumonia [Unknown]
  - Musculoskeletal disorder [Unknown]
  - Blindness [Unknown]
  - Gait inability [Recovered/Resolved]
  - Therapeutic product effect incomplete [Unknown]
